FAERS Safety Report 7225755-2 (Version None)
Quarter: 2011Q1

REPORT INFORMATION
  Report Type: 
  Country: None (occurrence: None)
  Receive Date: 20110113
  Receipt Date: 20101222
  Transmission Date: 20110831
  Serious: No
  Sender: FDA-Public Use
  Company Number: US-NOVEN-10US001437

PATIENT
  Sex: Female

DRUGS (5)
  1. FENTANYL-100 [Suspect]
     Indication: ARTHRITIS
  2. GABAPENTIN [Concomitant]
     Indication: PAIN
     Dosage: 400 MG, TID
     Route: 048
  3. FENTANYL-100 [Suspect]
     Indication: OSTEOPOROSIS
     Dosage: 75 UG/HR, Q72 HRS
     Route: 062
  4. FENTANYL-100 [Suspect]
     Indication: BACK PAIN
  5. CLONAZEPAM [Concomitant]
     Indication: INSOMNIA
     Dosage: .5 MG, QD
     Route: 048

REACTIONS (5)
  - APPLICATION SITE ERYTHEMA [None]
  - SKIN IRRITATION [None]
  - DRUG ADMINISTRATION ERROR [None]
  - PRURITUS [None]
  - RASH GENERALISED [None]
